FAERS Safety Report 15266029 (Version 4)
Quarter: 2019Q2

REPORT INFORMATION
  Report Type: Report from Study
  Country: IT (occurrence: IT)
  Receive Date: 20180810
  Receipt Date: 20190403
  Transmission Date: 20190711
  Serious: Yes (Hospitalization, Other)
  Sender: FDA-Public Use
  Company Number: IT-GLAXOSMITHKLINE-IT2018139667

PATIENT
  Age: 72 Year
  Sex: Female

DRUGS (6)
  1. ROPINIROLE HYDROCHLORIDE. [Suspect]
     Active Substance: ROPINIROLE HYDROCHLORIDE
     Indication: PARKINSONISM
     Dosage: 1 DF, QD, 4 MG TABLET
     Route: 048
     Dates: start: 20100423, end: 20180919
  2. ROPINIROLE HYDROCHLORIDE. [Suspect]
     Active Substance: ROPINIROLE HYDROCHLORIDE
     Dosage: 1 DF, QD, 2 MG TABLET
     Route: 048
     Dates: start: 20100423, end: 20180919
  3. LAEVOLAC [Concomitant]
     Active Substance: LACTULOSE
     Indication: PRODUCT USED FOR UNKNOWN INDICATION
     Dosage: 1 DF, UNK
     Route: 048
  4. SINEMET [Suspect]
     Active Substance: CARBIDOPA\LEVODOPA
     Indication: PARKINSONISM
     Dosage: 1 DF, QD
     Route: 048
     Dates: start: 20170502, end: 20180919
  5. STALEVO [Suspect]
     Active Substance: CARBIDOPA\ENTACAPONE\LEVODOPA
     Indication: PARKINSONISM
     Dosage: 4 DF, QD
     Route: 048
     Dates: start: 20141101, end: 20180919
  6. FOLINA [FOLIC ACID] [Concomitant]
     Active Substance: FOLIC ACID
     Indication: PRODUCT USED FOR UNKNOWN INDICATION
     Dosage: 1 DF, UNK
     Route: 048

REACTIONS (9)
  - Hallucination [Recovering/Resolving]
  - Spinal fracture [Unknown]
  - Orthostatic hypotension [Recovering/Resolving]
  - Wrist fracture [Recovering/Resolving]
  - Somnolence [Recovering/Resolving]
  - Presyncope [Recovering/Resolving]
  - Upper limb fracture [Unknown]
  - Fall [Recovering/Resolving]
  - Hand fracture [Unknown]

NARRATIVE: CASE EVENT DATE: 20180131
